FAERS Safety Report 14939965 (Version 6)
Quarter: 2018Q4

REPORT INFORMATION
  Report Type: Spontaneous
  Country: FI (occurrence: FI)
  Receive Date: 20180525
  Receipt Date: 20180903
  Transmission Date: 20190204
  Serious: Yes (Congenital Anomaly, Other)
  Sender: FDA-Public Use
  Company Number: FI-PFIZER INC-2018208328

PATIENT
  Sex: Male
  Weight: 2 kg

DRUGS (18)
  1. TENOX /00393701/ [Suspect]
     Active Substance: TEMAZEPAM
     Dosage: 1 TAB IN EVENING AS NEEDED (MAX 20MG/DAY)
     Route: 064
     Dates: start: 20170505
  2. KETIPINOR [Suspect]
     Active Substance: QUETIAPINE FUMARATE
     Dosage: 100 MG X2/DAY, ADDITIONALLY 100 MG AS NEEDED (MAX 300 MG/DAY)
     Route: 064
     Dates: start: 20170824
  3. SEROQUEL [Suspect]
     Active Substance: QUETIAPINE FUMARATE
     Dosage: 400 MG, 1X/DAY
     Route: 064
     Dates: start: 20170922
  4. KETIPINOR [Suspect]
     Active Substance: QUETIAPINE FUMARATE
     Dosage: 100 MG, 100 MG + 100 MG + 200 MG DAILY, AS NEEDED 100 MG (MAX 400 MG/DAY)
     Route: 064
     Dates: start: 20171020
  5. OXAMIN [Suspect]
     Active Substance: OXAZEPAM
     Dosage: 15 MG, AS NEEDED (MAX 45MG/DAY)
     Route: 064
  6. EMGESAN [Suspect]
     Active Substance: MAGNESIUM HYDROXIDE
     Dosage: 125 MG, AS NEEDED (MAX 250 MG/DAY)
     Route: 064
     Dates: start: 20171020
  7. PROPRANOLOL [Suspect]
     Active Substance: PROPRANOLOL HYDROCHLORIDE
     Indication: ANAEMIA
     Dosage: 100 MG, 1X/DAY
     Route: 064
     Dates: start: 20171020
  8. TEMESTA (LORAZEPAM) [Suspect]
     Active Substance: LORAZEPAM
     Dosage: 1 MG, 2X/DAY (MAX 3 MG/DAY)
     Route: 064
     Dates: start: 20170824
  9. KETIPINOR [Suspect]
     Active Substance: QUETIAPINE FUMARATE
     Dosage: 100 MG, 50 MG + 50 MG + 200 MG DAILY, ADDITIONALLY AS NEEDED 100 MG (MAX 400 MG/DAY)
     Route: 064
     Dates: start: 20170922
  10. SEROQUEL [Suspect]
     Active Substance: QUETIAPINE FUMARATE
     Dosage: 400 MG, 1X/DAY
     Route: 064
     Dates: start: 20170824
  11. SEROQUEL [Suspect]
     Active Substance: QUETIAPINE FUMARATE
     Dosage: 500 MG, 1X/DAY
     Route: 064
     Dates: start: 20171020
  12. OPAMOX [Suspect]
     Active Substance: OXAZEPAM
     Dosage: 15 MG 3XDAY, AND ADDITIONALLY 15-30 MG (MAX 30MG/DAY)
     Route: 064
     Dates: start: 20171020
  13. OPAMOX [Suspect]
     Active Substance: OXAZEPAM
     Dosage: 15 MG 3XDAY, AND AS NEEDED 15-30 MG (MAX 30 MG/DAY)
     Route: 064
     Dates: start: 20170922
  14. LORAZEPAM. [Suspect]
     Active Substance: LORAZEPAM
     Dosage: AS NEEDED 4 MG/ML (MAX 8 MG/ML/DAY)
     Route: 064
     Dates: start: 20171020
  15. EMGESAN [Suspect]
     Active Substance: MAGNESIUM HYDROXIDE
     Dosage: 125 MG, DAILY (MAX 250 MG/DAY)
     Route: 064
     Dates: start: 20170922
  16. KETIPINOR [Suspect]
     Active Substance: QUETIAPINE FUMARATE
     Dosage: 100 MG 1-2 TAB/DAY (MAX 600 MG/DAY)
     Route: 064
     Dates: start: 20170505
  17. EMGESAN [Suspect]
     Active Substance: MAGNESIUM HYDROXIDE
     Dosage: 125 MG, AS NEEDED  (MAX 250 MG)
     Route: 064
     Dates: start: 20170824
  18. PANADOL FORTE /00020001/ [Suspect]
     Active Substance: ACETAMINOPHEN
     Dosage: 1 G, AS NEEDED (MAX 3 G/DAY)
     Route: 064
     Dates: start: 20171020

REACTIONS (9)
  - Nephropathy [Unknown]
  - Head deformity [Unknown]
  - Cardiac septal defect [Unknown]
  - Polydactyly [Unknown]
  - Low birth weight baby [Unknown]
  - Premature baby [Unknown]
  - Maternal exposure during pregnancy [Unknown]
  - Poor sucking reflex [Unknown]
  - Heterotaxia [Unknown]
